FAERS Safety Report 19962168 (Version 1)
Quarter: 2021Q4

REPORT INFORMATION
  Report Type: Other
  Country: JP (occurrence: JP)
  Receive Date: 20211018
  Receipt Date: 20211018
  Transmission Date: 20220303
  Serious: Yes (Hospitalization)
  Sender: FDA-Public Use
  Company Number: JP-CAPLIN STERILES LIMITED-2120652

PATIENT
  Age: 41 Year
  Sex: Female
  Weight: 60 kg

DRUGS (2)
  1. ROPIVACAINE HYDROCHLORIDE [Suspect]
     Active Substance: ROPIVACAINE HYDROCHLORIDE
     Indication: Anaesthesia
     Route: 008
  2. FENTANYL [Concomitant]
     Active Substance: FENTANYL
     Route: 008

REACTIONS (3)
  - Neurotoxicity [Recovering/Resolving]
  - Overdose [Unknown]
  - Paralysis [Recovering/Resolving]
